FAERS Safety Report 14022342 (Version 2)
Quarter: 2017Q4

REPORT INFORMATION
  Report Type: Spontaneous
  Country: FR (occurrence: FR)
  Receive Date: 20170928
  Receipt Date: 20171005
  Transmission Date: 20180321
  Serious: Yes (Hospitalization, Other)
  Sender: FDA-Public Use
  Company Number: FR-009507513-1709FRA012373

PATIENT
  Age: 61 Year
  Sex: Female

DRUGS (5)
  1. DEPAKOTE [Concomitant]
     Active Substance: DIVALPROEX SODIUM
     Indication: HYPERTENSION
  2. PAROXETINE. [Concomitant]
     Active Substance: PAROXETINE
     Indication: HYPERTENSION
  3. EZETROL [Suspect]
     Active Substance: EZETIMIBE
     Indication: BLOOD CHOLESTEROL INCREASED
     Dosage: UNK
     Route: 048
     Dates: start: 201709, end: 20170922
  4. ALPRAZOLAM. [Concomitant]
     Active Substance: ALPRAZOLAM
     Indication: HYPERTENSION
  5. LOXEN (NICARDIPINE HYDROCHLORIDE) [Concomitant]
     Active Substance: NICARDIPINE HYDROCHLORIDE
     Indication: HYPERTENSION
     Dosage: ARTERIAL HYPERTENSION

REACTIONS (19)
  - Speech disorder [Unknown]
  - Dyspepsia [Unknown]
  - Lip swelling [Unknown]
  - Dyspnoea [Unknown]
  - Chest pain [Unknown]
  - Arthralgia [Unknown]
  - Ageusia [Unknown]
  - Asthenia [Unknown]
  - Migraine [Unknown]
  - Myalgia [Unknown]
  - Suicide attempt [Unknown]
  - Blood pressure abnormal [Unknown]
  - Insomnia [Unknown]
  - Decreased appetite [Unknown]
  - Cough [Unknown]
  - Movement disorder [Unknown]
  - Fatigue [Unknown]
  - Weight decreased [Unknown]
  - Dizziness [Unknown]

NARRATIVE: CASE EVENT DATE: 201709
